FAERS Safety Report 6799053-5 (Version None)
Quarter: 2010Q2

REPORT INFORMATION
  Report Type: 
  Country: None (occurrence: None)
  Receive Date: 20100623
  Receipt Date: 20100617
  Transmission Date: 20101027
  Serious: Yes (Other)
  Sender: FDA-Public Use
  Company Number: 2010SP034305

PATIENT
  Age: 58 Year
  Sex: Female

DRUGS (6)
  1. SAPHRIS [Suspect]
     Indication: AFFECTIVE DISORDER
     Dosage: 5 MG; BID; SL
     Route: 060
     Dates: start: 20100518, end: 20100606
  2. CELEXA (CON.) [Concomitant]
  3. ROZEREM (CON.) [Concomitant]
  4. PROVIGIL (CON.) [Concomitant]
  5. OPANA ER (CON.) [Concomitant]
  6. OPANA IR (CON.) [Concomitant]

REACTIONS (2)
  - NIGHTMARE [None]
  - PARANOIA [None]
